FAERS Safety Report 15683430 (Version 2)
Quarter: 2019Q1

REPORT INFORMATION
  Report Type: Report from Study
  Country: DE (occurrence: DE)
  Receive Date: 20181204
  Receipt Date: 20190321
  Transmission Date: 20190417
  Serious: Yes (Hospitalization, Other)
  Sender: FDA-Public Use
  Company Number: DE-BRISTOL-MYERS SQUIBB COMPANY-BMS-2018-112351

PATIENT
  Age: 82 Year
  Sex: Male
  Weight: 88 kg

DRUGS (6)
  1. NIVOLUMAB [Suspect]
     Active Substance: NIVOLUMAB
     Indication: NEUROENDOCRINE CARCINOMA OF THE SKIN
     Dosage: 480 MG, UNK
     Route: 042
     Dates: start: 20180823, end: 20181115
  2. APROVEL [Concomitant]
     Active Substance: IRBESARTAN
     Indication: PREMEDICATION
     Dosage: 75 MG, UNK
     Route: 048
  3. CONCOR [Concomitant]
     Active Substance: BISOPROLOL FUMARATE
     Indication: PREMEDICATION
     Dosage: 2.5 MG, UNK
     Route: 048
  4. SIMVASTATIN. [Concomitant]
     Active Substance: SIMVASTATIN
     Indication: PREMEDICATION
     Dosage: 20 MG, UNK
     Route: 048
  5. CLOPIDOGREL [Concomitant]
     Active Substance: CLOPIDOGREL BISULFATE
     Indication: PREMEDICATION
     Dosage: 75 MG, UNK
     Route: 048
  6. TORASEMIDE [Concomitant]
     Active Substance: TORSEMIDE
     Indication: PREMEDICATION
     Dosage: 5 MG, UNK
     Route: 048

REACTIONS (5)
  - Inflammation [Not Recovered/Not Resolved]
  - General physical health deterioration [Unknown]
  - Myalgia [Not Recovered/Not Resolved]
  - Syncope [Recovered/Resolved]
  - Dyspnoea [Not Recovered/Not Resolved]

NARRATIVE: CASE EVENT DATE: 20181018
